FAERS Safety Report 5336098-6 (Version None)
Quarter: 2007Q1

REPORT INFORMATION
  Report Type: 
  Country: None (occurrence: None)
  Receive Date: 20070308
  Receipt Date: 20070109
  Transmission Date: 20070707
  Serious: Yes (Hospitalization)
  Sender: FDA-Public Use
  Company Number: 2007MP000023

PATIENT
  Age: 86 Year
  Sex: Male
  Weight: 63.5036 kg

DRUGS (8)
  1. DACOGEN [Suspect]
     Indication: MYELODYSPLASTIC SYNDROME
     Dosage: 20 MG/M**2;QD;UNKNOWN
     Dates: start: 20061211, end: 20061215
  2. ASPIRIN [Concomitant]
  3. COZAAR [Concomitant]
  4. ISOSORBIDE [Concomitant]
  5. NEXIUM [Concomitant]
  6. NASAL SPRAY [Concomitant]
  7. VITAMIN [Concomitant]
  8. HYDROCHLOROTHIAZIDE [Concomitant]

REACTIONS (2)
  - FEBRILE NEUTROPENIA [None]
  - OFF LABEL USE [None]
